FAERS Safety Report 5925467-9 (Version None)
Quarter: 2008Q4

REPORT INFORMATION
  Report Type: 
  Country: None (occurrence: None)
  Receive Date: 20081021
  Receipt Date: 20081010
  Transmission Date: 20090506
  Serious: Yes (Other)
  Sender: FDA-Public Use
  Company Number: ZA-JNJFOC-20081002879

PATIENT
  Sex: Male

DRUGS (6)
  1. RISPERDAL [Suspect]
     Dosage: AT NIGHT
     Route: 048
  2. RISPERDAL [Suspect]
     Indication: DRUG USE FOR UNKNOWN INDICATION
     Route: 048
  3. CONCERTA [Suspect]
     Route: 065
  4. CONCERTA [Suspect]
     Indication: DEPRESSION
     Route: 065
  5. LAMICTIN [Suspect]
     Route: 065
  6. LAMICTIN [Suspect]
     Indication: DRUG USE FOR UNKNOWN INDICATION
     Route: 065

REACTIONS (5)
  - AGGRESSION [None]
  - AGITATION [None]
  - CRYING [None]
  - DEPRESSION [None]
  - SUICIDAL IDEATION [None]
